FAERS Safety Report 5095437-4 (Version None)
Quarter: 2006Q3

REPORT INFORMATION
  Report Type: 
  Country: None (occurrence: None)
  Receive Date: 20060901
  Receipt Date: 20060824
  Transmission Date: 20061208
  Serious: Yes (Other)
  Sender: FDA-Public Use
  Company Number: US-BRISTOL-MYERS SQUIBB COMPANY-13487558

PATIENT
  Age: 30 Year
  Sex: Female
  Weight: 51 kg

DRUGS (2)
  1. KENALOG [Suspect]
     Indication: RASH GENERALISED
     Route: 030
     Dates: start: 20060411, end: 20060411
  2. ONE-A-DAY [Concomitant]
     Route: 048

REACTIONS (5)
  - BLOOD PRESSURE INCREASED [None]
  - GASTROENTERITIS VIRAL [None]
  - LARYNGITIS [None]
  - SINUSITIS [None]
  - UTERINE HAEMORRHAGE [None]
